FAERS Safety Report 8220194-X (Version None)
Quarter: 2012Q1

REPORT INFORMATION
  Report Type: 
  Country: None (occurrence: None)
  Receive Date: 20120320
  Receipt Date: 20120307
  Transmission Date: 20120608
  Serious: Yes (Hospitalization)
  Sender: FDA-Public Use
  Company Number: US-BAYER-2012-023588

PATIENT
  Age: 32 Year
  Sex: Female
  Weight: 38.549 kg

DRUGS (8)
  1. SULFAMETHOXAZOLE AND TRIMETHOPRIM [Concomitant]
     Indication: INFECTION
     Dosage: TWICE A DAILY
     Dates: start: 20060718
  2. ROCEPHIN [Concomitant]
     Indication: RASH
  3. ROCEPHIN [Concomitant]
     Indication: VESSEL PUNCTURE SITE REACTION
  4. ROCEPHIN [Concomitant]
     Indication: INFECTION
     Dosage: 1 GRAM X 1 DOSE
     Route: 030
     Dates: start: 20060717
  5. ROCEPHIN [Concomitant]
     Indication: CELLULITIS
  6. YAZ [Suspect]
     Indication: CONTRACEPTION
  7. YAZ [Suspect]
     Indication: MENSTRUAL CYCLE MANAGEMENT
  8. SULFAMETHOXAZOLE AND TRIMETHOPRIM [Concomitant]
     Indication: CELLULITIS

REACTIONS (1)
  - SUBCLAVIAN VEIN THROMBOSIS [None]
